FAERS Safety Report 25174352 (Version 1)
Quarter: 2025Q2

REPORT INFORMATION
  Report Type: Spontaneous
  Country: US (occurrence: None)
  Receive Date: 20250408
  Receipt Date: 20250408
  Transmission Date: 20250716
  Serious: Yes (Hospitalization)
  Sender: FDA-CTU
  Company Number: None

PATIENT
  Age: 72 Year
  Sex: Male
  Weight: 102.1 kg

DRUGS (1)
  1. WELIREG [Suspect]
     Active Substance: BELZUTIFAN
     Indication: Renal cancer
     Dosage: DILY ORAL ?
     Route: 048
     Dates: start: 20250123

REACTIONS (4)
  - Headache [None]
  - Heart rate increased [None]
  - Oxygen saturation decreased [None]
  - Pleural effusion [None]

NARRATIVE: CASE EVENT DATE: 20250301
